FAERS Safety Report 8172839-0 (Version None)
Quarter: 2012Q1

REPORT INFORMATION
  Report Type: 
  Country: None (occurrence: None)
  Receive Date: 20120229
  Receipt Date: 20120222
  Transmission Date: 20120608
  Serious: Yes (Hospitalization, Other)
  Sender: FDA-Public Use
  Company Number: BR-SANOFI-AVENTIS-2012SA012089

PATIENT
  Age: 61 Year
  Sex: Female
  Weight: 60 kg

DRUGS (4)
  1. APIDRA SOLOSTAR [Suspect]
     Dosage: ACCORDING TO GLYCEMIC VALUE
     Route: 058
     Dates: start: 20110101
  2. ORAL ANTIDIABETICS [Concomitant]
     Indication: TYPE 2 DIABETES MELLITUS
     Route: 048
     Dates: start: 20110101
  3. SOLOSTAR [Suspect]
     Indication: DEVICE THERAPY
     Dates: start: 20110101
  4. METFORMIN HYDROCHLORIDE [Concomitant]
     Indication: TYPE 2 DIABETES MELLITUS
     Route: 048

REACTIONS (8)
  - DENGUE FEVER [None]
  - PYREXIA [None]
  - RASH MACULAR [None]
  - SLUGGISHNESS [None]
  - DIZZINESS [None]
  - PAIN [None]
  - HYPERGLYCAEMIA [None]
  - HEADACHE [None]
